FAERS Safety Report 10061911 (Version 1)
Quarter: 2014Q2

REPORT INFORMATION
  Report Type: Spontaneous
  Country: US (occurrence: None)
  Receive Date: 20140404
  Receipt Date: 20140404
  Transmission Date: 20141212
  Serious: Yes (Life-Threatening, Disabling, Other)
  Sender: FDA-Public Use
  Company Number: None

PATIENT
  Age: 56 Year
  Sex: Female
  Weight: 106.6 kg

DRUGS (2)
  1. CONCERTA [Suspect]
     Indication: ATTENTION DEFICIT/HYPERACTIVITY DISORDER
     Dosage: 2 IN AM/ 1 AT NOON, TAKEN BY MOUTH
     Route: 048
     Dates: start: 20140303, end: 20140401
  2. CONCERTA [Suspect]
     Indication: NARCOLEPSY
     Dosage: 2 IN AM/ 1 AT NOON, TAKEN BY MOUTH
     Route: 048
     Dates: start: 20140303, end: 20140401

REACTIONS (8)
  - Nausea [None]
  - Pyrexia [None]
  - Abdominal pain [None]
  - Proteinuria [None]
  - Occult blood [None]
  - Flank pain [None]
  - Oliguria [None]
  - Product substitution issue [None]
